FAERS Safety Report 15469929 (Version 3)
Quarter: 2019Q1

REPORT INFORMATION
  Report Type: Spontaneous
  Country: US (occurrence: US)
  Receive Date: 20181005
  Receipt Date: 20190322
  Transmission Date: 20190417
  Serious: Yes (Hospitalization, Disabling, Other)
  Sender: FDA-Public Use
  Company Number: US-SA-2018SA258199

PATIENT
  Age: 59 Year
  Sex: Female

DRUGS (12)
  1. LOSARTAN. [Concomitant]
     Active Substance: LOSARTAN
  2. MACROBID [CLARITHROMYCIN] [Concomitant]
     Active Substance: CLARITHROMYCIN
  3. AUBAGIO [Suspect]
     Active Substance: TERIFLUNOMIDE
     Dosage: 1 DF, QD
     Route: 048
     Dates: start: 20180423
  4. LIPITOR [Concomitant]
     Active Substance: ATORVASTATIN CALCIUM
  5. KOMBIGLYZE XR [Concomitant]
     Active Substance: METFORMIN HYDROCHLORIDE\SAXAGLIPTIN HYDROCHLORIDE
  6. VALSART [Concomitant]
     Active Substance: VALSARTAN
  7. VOLTAREN ACTI [Concomitant]
     Active Substance: DICLOFENAC POTASSIUM
  8. BACLOPHEN [Concomitant]
  9. GLIPIZIDE. [Concomitant]
     Active Substance: GLIPIZIDE
  10. ESCITALOPRAM [Concomitant]
     Active Substance: ESCITALOPRAM OXALATE
  11. FENOFIBRATE. [Concomitant]
     Active Substance: FENOFIBRATE
  12. CLINDAMYCIN. [Concomitant]
     Active Substance: CLINDAMYCIN

REACTIONS (8)
  - Tremor [Not Recovered/Not Resolved]
  - Pain in extremity [Unknown]
  - Balance disorder [Not Recovered/Not Resolved]
  - Urinary incontinence [Not Recovered/Not Resolved]
  - Eye movement disorder [Not Recovered/Not Resolved]
  - Urinary tract infection [Not Recovered/Not Resolved]
  - Multiple sclerosis [Unknown]
  - Pruritus [Unknown]

NARRATIVE: CASE EVENT DATE: 20180301
